FAERS Safety Report 9832073 (Version 1)
Quarter: 2014Q1

REPORT INFORMATION
  Report Type: Spontaneous
  Country: US (occurrence: US)
  Receive Date: 20140121
  Receipt Date: 20140121
  Transmission Date: 20141002
  Serious: No
  Sender: FDA-Public Use
  Company Number: US-B.I. PHARMACEUTICALS,INC./RIDGEFIELD-2014-BI-01826BP

PATIENT
  Age: 86 Year
  Sex: Female
  Weight: 81 kg

DRUGS (5)
  1. SPIRIVA [Suspect]
     Indication: CHRONIC OBSTRUCTIVE PULMONARY DISEASE
     Dosage: 18 MCG
     Route: 055
     Dates: start: 201309, end: 201309
  2. SPIRIVA [Suspect]
     Dosage: 18 MCG
     Route: 055
     Dates: start: 20140112
  3. PROAIR [Concomitant]
     Indication: CHRONIC OBSTRUCTIVE PULMONARY DISEASE
     Dosage: (INHALATION AEROSOL)
     Route: 055
  4. DULERA [Concomitant]
     Indication: CHRONIC OBSTRUCTIVE PULMONARY DISEASE
     Dosage: (INHALATION AEROSOL)
     Route: 055
  5. ZAFRILUKAST [Concomitant]
     Indication: CHRONIC OBSTRUCTIVE PULMONARY DISEASE
     Dosage: (INHALATION AEROSOL)
     Route: 055

REACTIONS (2)
  - Dyspnoea exertional [Not Recovered/Not Resolved]
  - Swollen tongue [Recovered/Resolved]
